FAERS Safety Report 9821616 (Version 1)
Quarter: 2014Q1

REPORT INFORMATION
  Report Type: Spontaneous
  Country: US (occurrence: US)
  Receive Date: 20140116
  Receipt Date: 20140116
  Transmission Date: 20141002
  Serious: No
  Sender: FDA-Public Use
  Company Number: US-BIOGENIDEC-2014BI000749

PATIENT
  Sex: Male

DRUGS (6)
  1. TECFIDERA [Suspect]
     Indication: MULTIPLE SCLEROSIS
  2. NEURONTIN [Concomitant]
  3. HYDROCODONE BITARTRATE [Concomitant]
  4. CLONAZEPAM [Concomitant]
  5. BACLOFEN [Concomitant]
  6. ONDANSETRON [Concomitant]

REACTIONS (1)
  - Hypertension [Unknown]
